FAERS Safety Report 21286783 (Version 1)
Quarter: 2022Q3

REPORT INFORMATION
  Report Type: Spontaneous
  Country: US (occurrence: US)
  Receive Date: 20220902
  Receipt Date: 20220902
  Transmission Date: 20221027
  Serious: No
  Sender: FDA-Public Use
  Company Number: US-PFIZER INC-202201110615

PATIENT
  Age: 59 Year
  Sex: Female

DRUGS (4)
  1. PAXLOVID [Suspect]
     Active Substance: NIRMATRELVIR\RITONAVIR
     Indication: COVID-19 treatment
     Dosage: UNK
     Dates: start: 20220808, end: 20220809
  2. SPRING VALLEY VITAMIN D3 [Concomitant]
     Dosage: UNK
     Dates: start: 201904, end: 20220831
  3. GERI CARE VITAMIN C [Concomitant]
     Dosage: UNK
     Dates: start: 20220719, end: 20220831
  4. ONE A DAY [MINERALS NOS;VITAMINS NOS] [Concomitant]
     Dosage: UNK

REACTIONS (3)
  - Pruritus [Recovered/Resolved]
  - Lip pruritus [Recovered/Resolved]
  - Lip swelling [Recovered/Resolved]

NARRATIVE: CASE EVENT DATE: 20220809
